FAERS Safety Report 25241716 (Version 1)
Quarter: 2025Q2

REPORT INFORMATION
  Report Type: Spontaneous
  Country: US (occurrence: US)
  Receive Date: 20250426
  Receipt Date: 20250426
  Transmission Date: 20250717
  Serious: No
  Sender: ELI LILLY AND COMPANY
  Company Number: US-ELI_LILLY_AND_COMPANY-US202504020807

PATIENT
  Age: 60 Year

DRUGS (1)
  1. TRULICITY [Suspect]
     Active Substance: DULAGLUTIDE
     Indication: Weight control
     Route: 058

REACTIONS (2)
  - Off label use [Unknown]
  - Accidental overdose [Unknown]

NARRATIVE: CASE EVENT DATE: 20250422
